FAERS Safety Report 7677343-1 (Version None)
Quarter: 2011Q3

REPORT INFORMATION
  Report Type: 
  Country: None (occurrence: None)
  Receive Date: 20110808
  Receipt Date: 20110727
  Transmission Date: 20111222
  Serious: Yes (Hospitalization)
  Sender: FDA-Public Use
  Company Number: ABR_00201_2011

PATIENT
  Age: 91 Year
  Sex: Female

DRUGS (12)
  1. ERYTHROMYCIN [Suspect]
     Indication: URINARY TRACT INFECTION
     Dosage: ORAL
     Route: 048
     Dates: start: 20101001, end: 20101006
  2. SIMAVASTATIN [Concomitant]
  3. BUMETANIDE [Concomitant]
  4. ACETAMINOPHEN AND CODEINE PHOSPHATE [Concomitant]
  5. LORATADINE [Concomitant]
  6. NITROGLYCERIN [Concomitant]
  7. DIGOXIN [Concomitant]
  8. ALLOPURINOL [Suspect]
     Indication: PRODUCT USED FOR UNKNOWN INDICATION
     Dosage: 300 MG ORAL
     Route: 048
     Dates: start: 20100913, end: 20101010
  9. OMEPRAZOLE [Concomitant]
  10. CLOPIDOGREL [Concomitant]
  11. PERINDOPRIL [Concomitant]
  12. DOMPERIDONE [Concomitant]

REACTIONS (5)
  - RASH PRURITIC [None]
  - ABASIA [None]
  - RASH GENERALISED [None]
  - RASH MACULO-PAPULAR [None]
  - DYSSTASIA [None]
